FAERS Safety Report 13537445 (Version 1)
Quarter: 2017Q2

REPORT INFORMATION
  Report Type: Spontaneous
  Country: US (occurrence: US)
  Receive Date: 20170511
  Receipt Date: 20170511
  Transmission Date: 20170830
  Serious: No
  Sender: FDA-Public Use
  Company Number: US-GE HEALTHCARE LIFE SCIENCES-2017CSU001195

PATIENT
  Age: 46 Year
  Sex: Female
  Weight: 83.9 kg

DRUGS (1)
  1. OMNIPAQUE [Suspect]
     Active Substance: IOHEXOL
     Indication: ABDOMINAL PAIN LOWER
     Dosage: 150 ML, SINGLE
     Route: 042
     Dates: start: 20170508, end: 20170508

REACTIONS (1)
  - Sneezing [Recovered/Resolved]

NARRATIVE: CASE EVENT DATE: 20170508
